FAERS Safety Report 4879272-5 (Version None)
Quarter: 2005Q4

REPORT INFORMATION
  Report Type: 
  Country: None (occurrence: None)
  Receive Date: 20051207
  Receipt Date: 20050205
  Transmission Date: 20060501
  Serious: Yes (Other)
  Sender: FDA-Public Use
  Company Number: 2005011658

PATIENT
  Sex: Male

DRUGS (2)
  1. VIAGRA [Suspect]
     Indication: ILL-DEFINED DISORDER
     Dosage: 25 MG (50 MG), ORAL
     Route: 048
     Dates: start: 20050101
  2. OLANZAPINE [Concomitant]

REACTIONS (1)
  - ERECTION INCREASED [None]
